FAERS Safety Report 5892708-6 (Version None)
Quarter: 2008Q3

REPORT INFORMATION
  Report Type: 
  Country: None (occurrence: None)
  Receive Date: 20080923
  Receipt Date: 20080917
  Transmission Date: 20090109
  Serious: Yes (Death)
  Sender: FDA-Public Use
  Company Number: PHEH2007US07910

PATIENT
  Sex: Female

DRUGS (10)
  1. EXJADE [Suspect]
     Indication: SERUM FERRITIN INCREASED
     Dosage: 125 MG, QD
     Route: 048
     Dates: start: 20070312, end: 20070409
  2. EXJADE [Suspect]
     Indication: IRON OVERLOAD
  3. EXJADE [Suspect]
     Indication: MYELODYSPLASTIC SYNDROME
  4. HUMALOG [Concomitant]
     Indication: DIABETES MELLITUS
     Dosage: 75/ 25U DAILY SC
     Route: 058
  5. SYNTHROID [Concomitant]
     Indication: THYROID DISORDER
     Dosage: 125 UG, QD
     Route: 048
  6. COREG [Concomitant]
     Indication: CARDIAC DISORDER
     Dosage: 25 MG, BID
     Route: 048
  7. WELLBUTRIN [Concomitant]
     Indication: DEPRESSION
     Dosage: 75 MG, QD
     Route: 048
  8. THALIDOMIDE [Concomitant]
     Indication: MYELODYSPLASTIC SYNDROME
     Dosage: 200 MG, QD
     Route: 048
  9. XANAX [Concomitant]
     Indication: ANXIETY
     Dosage: 0.5 MG, QID
     Route: 048
  10. NITROGLYCERIN [Concomitant]
     Indication: CARDIAC DISORDER
     Dosage: 0.4 MG, PRN
     Route: 060

REACTIONS (5)
  - MYELODYSPLASTIC SYNDROME [None]
  - ORGAN FAILURE [None]
  - PANCYTOPENIA [None]
  - THROMBOCYTOPENIA [None]
  - WHITE BLOOD CELL COUNT DECREASED [None]
